FAERS Safety Report 20076178 (Version 1)
Quarter: 2021Q4

REPORT INFORMATION
  Report Type: Spontaneous
  Country: CA (occurrence: CA)
  Receive Date: 20211116
  Receipt Date: 20211116
  Transmission Date: 20220303
  Serious: Yes (Other)
  Sender: FDA-Public Use
  Company Number: CA-TEVA-2021-CA-1976827

PATIENT
  Age: 71 Year
  Weight: 82 kg

DRUGS (1)
  1. METHOTREXATE [Suspect]
     Active Substance: METHOTREXATE
     Indication: Product used for unknown indication
     Route: 065

REACTIONS (4)
  - Arthritis [Unknown]
  - Disease progression [Unknown]
  - Granulomatosis with polyangiitis [Unknown]
  - Therapeutic product effect decreased [Unknown]
